FAERS Safety Report 9570512 (Version 6)
Quarter: 2014Q3

REPORT INFORMATION
  Report Type: Report from Study
  Country: NL (occurrence: NL)
  Receive Date: 20131001
  Receipt Date: 20140710
  Transmission Date: 20150326
  Serious: Yes (Death, Hospitalization, Other)
  Sender: FDA-Public Use
  Company Number: NL-BIOGENIDEC-2013BI094306

PATIENT
  Age: 54 Year
  Sex: Female

DRUGS (3)
  1. LYRICA [Concomitant]
     Active Substance: PREGABALIN
  2. BACLOFEN. [Concomitant]
     Active Substance: BACLOFEN
  3. AVONEX [Suspect]
     Active Substance: INTERFERON BETA-1A
     Indication: RELAPSING-REMITTING MULTIPLE SCLEROSIS
     Route: 030
     Dates: start: 20110810, end: 201404

REACTIONS (4)
  - Bile duct cancer [Unknown]
  - Pancreatic neoplasm [Unknown]
  - Pancreatic carcinoma [Unknown]
  - Death [Fatal]

NARRATIVE: CASE EVENT DATE: 20130531
